FAERS Safety Report 26086833 (Version 1)
Quarter: 2025Q4

REPORT INFORMATION
  Report Type: Spontaneous
  Country: US (occurrence: None)
  Receive Date: 20251124
  Receipt Date: 20251124
  Transmission Date: 20260117
  Serious: No
  Sender: FDA-CTU
  Company Number: None

PATIENT
  Age: 51 Year
  Sex: Female
  Weight: 75.3 kg

DRUGS (2)
  1. OCTAGAM IMMUNE GLOBULIN (HUMAN) [Suspect]
     Active Substance: HUMAN IMMUNOGLOBULIN G
     Indication: Dermatomyositis
     Dosage: 150 G GRAM(S) Q 4 WKS INTRAVENOUS ?
     Route: 042
     Dates: start: 20251120, end: 20251124
  2. OCTAGAM IMMUNE GLOBULIN (HUMAN) [Suspect]
     Active Substance: HUMAN IMMUNOGLOBULIN G
     Indication: Polymyositis

REACTIONS (5)
  - Blood pressure increased [None]
  - Heart rate increased [None]
  - Flushing [None]
  - Throat tightness [None]
  - Infusion related reaction [None]

NARRATIVE: CASE EVENT DATE: 20251124
